FAERS Safety Report 18087689 (Version 1)
Quarter: 2020Q3

REPORT INFORMATION
  Report Type: Spontaneous
  Country: US (occurrence: US)
  Receive Date: 20200729
  Receipt Date: 20200729
  Transmission Date: 20201103
  Serious: No
  Sender: FDA-Public Use
  Company Number: US-ABBVIE-20K-163-3382754-00

PATIENT
  Sex: Male

DRUGS (1)
  1. NIASPAN [Suspect]
     Active Substance: NIACIN
     Indication: BLOOD CHOLESTEROL
     Route: 048

REACTIONS (3)
  - Flushing [Unknown]
  - Urticaria [Unknown]
  - Pruritus [Unknown]
